FAERS Safety Report 12923617 (Version 2)
Quarter: 2016Q4

REPORT INFORMATION
  Report Type: Report from Study
  Country: GB (occurrence: GB)
  Receive Date: 20161108
  Receipt Date: 20161124
  Transmission Date: 20170207
  Serious: Yes (Other)
  Sender: FDA-Public Use
  Company Number: GB-JNJFOC-20160805909

PATIENT
  Age: 42 Year
  Sex: Male

DRUGS (7)
  1. CALCIPOTRIENE AND BETAMETHASONE DIPROPIONATE [Concomitant]
     Active Substance: BETAMETHASONE DIPROPIONATE\CALCIPOTRIENE
     Indication: PSORIASIS
     Dosage: 60 GRAMS
     Route: 065
     Dates: start: 20161018, end: 20161018
  2. SAXAGLIPTIN [Concomitant]
     Active Substance: SAXAGLIPTIN
     Indication: DIABETES MELLITUS
     Dosage: 28 TABLETS
     Route: 065
     Dates: start: 20160621
  3. OILATUM [Concomitant]
     Indication: PSORIASIS
     Dosage: 500 G APPLY AS NEEDED
     Route: 061
     Dates: start: 20150408
  4. METFORMIN [Concomitant]
     Active Substance: METFORMIN HYDROCHLORIDE
     Indication: DIABETES MELLITUS
     Route: 065
     Dates: start: 20150206
  5. SIMVASTATIN. [Concomitant]
     Active Substance: SIMVASTATIN
     Indication: DIABETES MELLITUS
     Dosage: 28 TABLETS-TAKE ONE AT NIGHT
     Route: 065
     Dates: start: 20150206
  6. LANSOPRAZOLE. [Concomitant]
     Active Substance: LANSOPRAZOLE
     Indication: GASTROOESOPHAGEAL REFLUX DISEASE
     Dosage: 28 CAPSULES
     Route: 065
     Dates: start: 20150206
  7. STELARA [Suspect]
     Active Substance: USTEKINUMAB
     Indication: PSORIASIS
     Route: 058
     Dates: start: 201601

REACTIONS (5)
  - Lower respiratory tract infection [Unknown]
  - Psoriasis [Recovering/Resolving]
  - Otitis externa [Unknown]
  - Otitis media [Unknown]
  - Tympanic membrane perforation [Unknown]

NARRATIVE: CASE EVENT DATE: 20160621
